FAERS Safety Report 6301626-0 (Version None)
Quarter: 2009Q3

REPORT INFORMATION
  Report Type: 
  Country: None (occurrence: None)
  Receive Date: 20090807
  Receipt Date: 20090728
  Transmission Date: 20100115
  Serious: Yes (Hospitalization)
  Sender: FDA-Public Use
  Company Number: FR-GENENTECH-287704

PATIENT
  Sex: Male

DRUGS (4)
  1. RITUXIMAB [Suspect]
     Indication: DIFFUSE LARGE B-CELL LYMPHOMA
     Dosage: 690 MG, 1ST DAY EACH CYCLE
     Route: 041
     Dates: start: 20090323, end: 20090629
  2. CISPLATIN [Suspect]
     Indication: DIFFUSE LARGE B-CELL LYMPHOMA
     Dosage: 185 MG, 1ST DAY EACH CYCLE
     Route: 042
     Dates: start: 20090324, end: 20090629
  3. CYTARABINE [Suspect]
     Indication: DIFFUSE LARGE B-CELL LYMPHOMA
     Dosage: 3700 MG, DAYS 1 AND 2 OF EACH CYCLE
     Route: 065
     Dates: start: 20090325, end: 20090630
  4. DEXAMETHASONE [Suspect]
     Indication: DIFFUSE LARGE B-CELL LYMPHOMA
     Dosage: 20 MG, DAYS 1 THROUGH 4 OF EVERY CYCLE
     Route: 041
     Dates: start: 20090325, end: 20090701

REACTIONS (2)
  - FEBRILE BONE MARROW APLASIA [None]
  - PNEUMONIA [None]
